FAERS Safety Report 8275092-2 (Version None)
Quarter: 2012Q2

REPORT INFORMATION
  Report Type: 
  Country: None (occurrence: None)
  Receive Date: 20120411
  Receipt Date: 20120404
  Transmission Date: 20120825
  Serious: Yes (Other)
  Sender: FDA-Public Use
  Company Number: JP-PFIZER INC-2012038366

PATIENT
  Age: 58 Year
  Sex: Female
  Weight: 57 kg

DRUGS (5)
  1. CARBOCAIN [Concomitant]
     Indication: PROPHYLAXIS
     Dosage: 50 MG, DAILY
     Route: 041
     Dates: start: 20110524, end: 20110524
  2. ZOSYN [Suspect]
     Indication: PNEUMONIA
     Dosage: 4.5 G, 3X/DAY
     Route: 041
     Dates: start: 20110523, end: 20110524
  3. PHENYTOIN SODIUM CAP [Concomitant]
     Indication: EPILEPSY
     Dosage: 300 MG, DAILY
     Route: 048
  4. FAMOTIDINE [Concomitant]
     Dosage: 20 MG, DAILY
     Route: 048
  5. BROTIZOLAM [Concomitant]
     Dosage: 0.25 MG, DAILY
     Route: 048

REACTIONS (1)
  - LOSS OF CONSCIOUSNESS [None]
